FAERS Safety Report 10189996 (Version 3)
Quarter: 2014Q3

REPORT INFORMATION
  Report Type: Spontaneous
  Country: IT (occurrence: IT)
  Receive Date: 20140522
  Receipt Date: 20140905
  Transmission Date: 20150326
  Serious: Yes (Other)
  Sender: FDA-Public Use
  Company Number: IT-AMGEN-ITASP2014037481

PATIENT
  Age: 59 Year
  Sex: Male

DRUGS (2)
  1. ENBREL [Suspect]
     Active Substance: ETANERCEPT
     Indication: PRODUCT USED FOR UNKNOWN INDICATION
     Dosage: 4 DF, WEEKLY
     Route: 065
     Dates: start: 201402
  2. ENBREL [Suspect]
     Active Substance: ETANERCEPT
     Dosage: 1 DF, WEEKLY
     Route: 065
     Dates: start: 2014

REACTIONS (3)
  - Rectal haemorrhage [Recovered/Resolved]
  - Rectal polyp [Not Recovered/Not Resolved]
  - Colon cancer [Unknown]

NARRATIVE: CASE EVENT DATE: 20140731
